FAERS Safety Report 9631388 (Version 2)
Quarter: 2014Q1

REPORT INFORMATION
  Report Type: Spontaneous
  Country: JP (occurrence: None)
  Receive Date: 20131011
  Receipt Date: 20140205
  Transmission Date: 20141002
  Serious: Yes (Death)
  Sender: FDA-Public Use
  Company Number: CO-OR-JP-2013-121

PATIENT
  Age: 65 Year
  Sex: Male

DRUGS (4)
  1. PREDNISOLONE (PREDNISOLONE) [Suspect]
     Indication: CONNECTIVE TISSUE DISORDER
  2. LIPOSOMAL AMPHOTERICIN B [Suspect]
     Indication: SYSTEMIC MYCOSIS
  3. ITRACONAZOLE [Concomitant]
  4. VORICONAZOLE [Suspect]
     Indication: FUNGAL INFECTION

REACTIONS (1)
  - Cardiac failure [None]
